FAERS Safety Report 10173328 (Version 1)
Quarter: 2014Q2

REPORT INFORMATION
  Report Type: Spontaneous
  Country: US (occurrence: US)
  Receive Date: 20140515
  Receipt Date: 20140515
  Transmission Date: 20141212
  Serious: No
  Sender: FDA-Public Use
  Company Number: US-PFIZER INC-2014131234

PATIENT
  Age: 33 Year
  Sex: Male

DRUGS (5)
  1. LYRICA [Suspect]
     Dosage: 150 MG, 2X/DAY
     Route: 048
  2. CELEBREX [Suspect]
     Dosage: 100 MG, 2X/DAY
     Route: 048
  3. BACLOFEN [Concomitant]
     Dosage: 10 MG, UNK
  4. BUSPIRONE [Concomitant]
     Dosage: 5 MG, UNK
  5. GABAPENTIN [Concomitant]
     Dosage: 300 MG, UNK

REACTIONS (1)
  - Pain [Unknown]
